FAERS Safety Report 18491457 (Version 1)
Quarter: 2020Q4

REPORT INFORMATION
  Report Type: Spontaneous
  Country: GB (occurrence: GB)
  Receive Date: 20201111
  Receipt Date: 20201111
  Transmission Date: 20210114
  Serious: Yes (Other)
  Sender: FDA-Public Use
  Company Number: GB-PFIZER INC-2020442706

PATIENT
  Sex: Female

DRUGS (1)
  1. EFEXOR XL [Suspect]
     Active Substance: VENLAFAXINE HYDROCHLORIDE
     Indication: DEPRESSION
     Dosage: UNK

REACTIONS (7)
  - Mental impairment [Unknown]
  - Blindness [Unknown]
  - Glaucoma [Unknown]
  - Aphasia [Unknown]
  - Drug dependence [Unknown]
  - Gait inability [Unknown]
  - Depressed level of consciousness [Unknown]
